FAERS Safety Report 4459260-3 (Version None)
Quarter: 2004Q3

REPORT INFORMATION
  Report Type: 
  Country: None (occurrence: None)
  Receive Date: 20040922
  Receipt Date: 20040922
  Transmission Date: 20050211
  Serious: No
  Sender: FDA-Public Use
  Company Number: None

PATIENT
  Age: 60 Year
  Sex: Male
  Weight: 92.6 kg

DRUGS (2)
  1. WARFARIN SODIUM [Suspect]
     Indication: ATRIAL FIBRILLATION
     Dosage: 5 MG DAILY CEPT 7.5 MG ORAL
     Route: 048
     Dates: start: 20040525, end: 20040622
  2. AMIORDARONE [Suspect]
     Indication: ATRIAL FIBRILLATION
     Dosage: 200 MG BID ORAL
     Route: 048
     Dates: start: 20040525, end: 20040622

REACTIONS (9)
  - ANAEMIA [None]
  - BLOODY DISCHARGE [None]
  - CONDITION AGGRAVATED [None]
  - CYST [None]
  - DRUG INTERACTION [None]
  - FAECAL OCCULT BLOOD POSITIVE [None]
  - HYPERKALAEMIA [None]
  - INTERNATIONAL NORMALISED RATIO INCREASED [None]
  - RENAL FAILURE CHRONIC [None]
